FAERS Safety Report 6895340-0 (Version None)
Quarter: 2010Q3

REPORT INFORMATION
  Report Type: 
  Country: None (occurrence: None)
  Receive Date: 20100728
  Receipt Date: 20100721
  Transmission Date: 20110219
  Serious: Yes (Other)
  Sender: FDA-Public Use
  Company Number: WAES 1007USA01498

PATIENT
  Age: 39 Year
  Sex: Female

DRUGS (7)
  1. ISENTRESS [Suspect]
     Indication: ACQUIRED IMMUNODEFICIENCY SYNDROME
     Dosage: 800 MG/DAILY/PO
     Route: 048
     Dates: end: 20100323
  2. COMBIVIR [Concomitant]
  3. EMTRIVA [Concomitant]
  4. KALETRA [Concomitant]
  5. NORVIR [Concomitant]
  6. PREZISTA [Concomitant]
  7. VIREAD [Concomitant]

REACTIONS (3)
  - ALPHA 1 FOETOPROTEIN [None]
  - DRUG EXPOSURE DURING PREGNANCY [None]
  - STILLBIRTH [None]
